FAERS Safety Report 5272751-0 (Version None)
Quarter: 2007Q1

REPORT INFORMATION
  Report Type: 
  Country: None (occurrence: None)
  Receive Date: 20070322
  Receipt Date: 20070320
  Transmission Date: 20070707
  Serious: Yes (Other)
  Sender: FDA-Public Use
  Company Number: US-GLAXOSMITHKLINE-A0643922A

PATIENT
  Age: 53 Year
  Sex: Male

DRUGS (2)
  1. AVANDIA [Suspect]
     Dosage: 8MG PER DAY
     Route: 048
  2. INSULIN [Suspect]
     Route: 055

REACTIONS (4)
  - DRUG INTERACTION [None]
  - FLUID RETENTION [None]
  - PERICARDIAL EFFUSION [None]
  - PERIORBITAL OEDEMA [None]
